FAERS Safety Report 6370954-5 (Version None)
Quarter: 2009Q3

REPORT INFORMATION
  Report Type: 
  Country: None (occurrence: None)
  Receive Date: 20090923
  Receipt Date: 20071113
  Transmission Date: 20100115
  Serious: Yes (Hospitalization)
  Sender: FDA-Public Use
  Company Number: US-ASTRAZENECA-2006UW22763

PATIENT
  Age: 571 Month
  Sex: Female
  Weight: 88.5 kg

DRUGS (3)
  1. SEROQUEL [Suspect]
     Indication: DEPRESSION
     Dosage: 100 TO 200 MG
     Route: 048
     Dates: start: 20040401, end: 20050601
  2. SEROQUEL [Suspect]
     Route: 048
     Dates: start: 20040603
  3. GEODON [Concomitant]
     Dates: start: 20070101

REACTIONS (2)
  - PNEUMONIA [None]
  - TYPE 2 DIABETES MELLITUS [None]
